FAERS Safety Report 4873345-9 (Version None)
Quarter: 2006Q1

REPORT INFORMATION
  Report Type: 
  Country: None (occurrence: None)
  Receive Date: 20060104
  Receipt Date: 20051227
  Transmission Date: 20060701
  Serious: Yes (Hospitalization)
  Sender: FDA-Public Use
  Company Number: TCI2005A05202

PATIENT
  Age: 69 Year
  Sex: Female

DRUGS (7)
  1. PIOGLITAZONE HCL [Suspect]
     Indication: DIABETES MELLITUS NON-INSULIN-DEPENDENT
     Dosage: 15 MG (15 MG, 1 IN 1 D) PER ORAL
     Route: 048
     Dates: start: 20021205
  2. NORVASC [Concomitant]
  3. ZESTRIL [Concomitant]
  4. NELBIS (METFORMIN HYDROCHLORIDE) [Concomitant]
  5. RHYTHMY (RILMAZAFONE) [Concomitant]
  6. FLUNITRAZEPAM [Concomitant]
  7. GLIMICRON (GLICLAZIDE) [Concomitant]

REACTIONS (1)
  - COLITIS ISCHAEMIC [None]
